FAERS Safety Report 8350987-X (Version None)
Quarter: 2012Q2

REPORT INFORMATION
  Report Type: 
  Country: None (occurrence: None)
  Receive Date: 20120510
  Receipt Date: 20120425
  Transmission Date: 20120825
  Serious: Yes (Other)
  Sender: FDA-Public Use
  Company Number: CHPA2012US009952

PATIENT
  Age: 48 Year
  Sex: Male

DRUGS (1)
  1. BENEFIBER PLUS CALCIUM WITH WHEAT DEXTRIN [Suspect]
     Indication: DIVERTICULITIS
     Dosage: UNK, AS DIRECTED
     Route: 048
     Dates: start: 20020101

REACTIONS (5)
  - GASTROINTESTINAL PAIN [None]
  - OFF LABEL USE [None]
  - DIARRHOEA [None]
  - COLITIS [None]
  - DIVERTICULITIS [None]
